FAERS Safety Report 12866079 (Version 3)
Quarter: 2016Q4

REPORT INFORMATION
  Report Type: Spontaneous
  Country: FR (occurrence: FR)
  Receive Date: 20161020
  Receipt Date: 20161229
  Transmission Date: 20170207
  Serious: Yes (Other)
  Sender: FDA-Public Use
  Company Number: FR-PFIZER INC-2016485691

PATIENT
  Age: 68 Year
  Sex: Male
  Weight: 120 kg

DRUGS (5)
  1. XALATAN [Suspect]
     Active Substance: LATANOPROST
     Dosage: 0.005 %, 1X/DAY IN EITHER EYE
     Dates: start: 201609, end: 20161013
  2. NOVOMIX [Concomitant]
     Active Substance: INSULIN ASPART
     Indication: DIABETES MELLITUS
     Dosage: 50 UNITS ON HIS ARM BEFORE EVERY MEAL
  3. XALATAN [Suspect]
     Active Substance: LATANOPROST
     Indication: GLAUCOMA
     Dosage: UNK
     Dates: start: 201311
  4. LATANOPROST BIOGARAN [Suspect]
     Active Substance: LATANOPROST
     Indication: GLAUCOMA
     Dosage: UNK
     Dates: start: 201311
  5. LATANOPROST BIOGARAN [Suspect]
     Active Substance: LATANOPROST
     Dosage: 0.005 %, 1X/DAY, IN EITHER EYE
     Dates: start: 201609, end: 20161013

REACTIONS (6)
  - Blood pressure increased [Recovered/Resolved]
  - Depression [Recovered/Resolved]
  - Chest pain [Recovered/Resolved]
  - Nasopharyngitis [Not Recovered/Not Resolved]
  - Nasal congestion [Not Recovered/Not Resolved]
  - Hypersensitivity [Unknown]

NARRATIVE: CASE EVENT DATE: 2013
